FAERS Safety Report 25808816 (Version 2)
Quarter: 2025Q4

REPORT INFORMATION
  Report Type: Spontaneous
  Country: EU (occurrence: EU)
  Receive Date: 20250916
  Receipt Date: 20251001
  Transmission Date: 20260118
  Serious: Yes (Other)
  Sender: EMD SERONO INC
  Company Number: EU-Merck Healthcare KGaA-2025045911

PATIENT
  Age: 38 Year
  Sex: Female

DRUGS (3)
  1. MAVENCLAD [Suspect]
     Active Substance: CLADRIBINE
     Indication: Multiple sclerosis
     Dosage: YEAR ONE THERAPY.
  2. CHLORMADINONE ACETATE [Suspect]
     Active Substance: CHLORMADINONE ACETATE
     Indication: Hormonal contraception
  3. NICOTINE [Suspect]
     Active Substance: NICOTINE
     Indication: Product used for unknown indication

REACTIONS (2)
  - Pulmonary embolism [Recovering/Resolving]
  - Embolic pneumonia [Recovering/Resolving]

NARRATIVE: CASE EVENT DATE: 20250811
